FAERS Safety Report 11906033 (Version 1)
Quarter: 2016Q1

REPORT INFORMATION
  Report Type: Spontaneous
  Country: US (occurrence: None)
  Receive Date: 20160108
  Receipt Date: 20160108
  Transmission Date: 20160526
  Serious: Yes (Hospitalization)
  Sender: FDA-Public Use
  Company Number: None

PATIENT
  Age: 78 Year
  Sex: Female
  Weight: 67.1 kg

DRUGS (13)
  1. POMALIDOMIDE [Suspect]
     Active Substance: POMALIDOMIDE
     Indication: PLASMA CELL MYELOMA
     Dosage: 1 PILL; QD FOR 21/28 DAYS
     Route: 048
     Dates: start: 20151019, end: 20151121
  2. ASPIRIN. [Concomitant]
     Active Substance: ASPIRIN
  3. ESTRADIOL. [Concomitant]
     Active Substance: ESTRADIOL
  4. CHOLECALCIFEROL [Concomitant]
     Active Substance: CHOLECALCIFEROL
  5. VITAMIN D3 [Concomitant]
     Active Substance: CHOLECALCIFEROL
  6. ZOMETA [Concomitant]
     Active Substance: ZOLEDRONIC ACID
  7. FILGRASTIM (NEUPOGEN) [Concomitant]
  8. ACYCLOVIR (ZOVIRAX) [Concomitant]
  9. NEUTROPENIA CHLORPHENIRAMINE-HYDROCODONE [Concomitant]
  10. DECADRON [Concomitant]
     Active Substance: DEXAMETHASONE
  11. TYLENOL [Concomitant]
     Active Substance: ACETAMINOPHEN
  12. HYDROCODONE-ACETAMINOPHEN (VICODIN) [Concomitant]
  13. CYCLOPHOSPHAMIDE. [Suspect]
     Active Substance: CYCLOPHOSPHAMIDE
     Indication: PLASMA CELL MYELOMA
     Dosage: QD 21/28 DAYS
     Route: 048

REACTIONS (3)
  - Fall [None]
  - Head injury [None]
  - Mental status changes [None]

NARRATIVE: CASE EVENT DATE: 20151122
